FAERS Safety Report 9787499 (Version 1)
Quarter: 2013Q4

REPORT INFORMATION
  Report Type: Other
  Country: AU (occurrence: AU)
  Receive Date: 20131230
  Receipt Date: 20131230
  Transmission Date: 20140711
  Serious: Yes (Hospitalization, Other)
  Sender: FDA-Public Use
  Company Number: AU-BRISTOL-MYERS SQUIBB COMPANY-19942408

PATIENT
  Age: 73 Year
  Sex: Male
  Weight: 80 kg

DRUGS (4)
  1. METFORMIN HCL [Suspect]
     Indication: TYPE 2 DIABETES MELLITUS
  2. SOTALOL [Suspect]
  3. WARFARIN SODIUM [Suspect]
  4. GLICLAZIDE [Suspect]
     Indication: TYPE 2 DIABETES MELLITUS

REACTIONS (4)
  - Atrial flutter [Unknown]
  - Cardiogenic shock [Unknown]
  - Systolic dysfunction [Recovered/Resolved]
  - Mitral valve incompetence [Unknown]
